FAERS Safety Report 25738924 (Version 4)
Quarter: 2025Q4

REPORT INFORMATION
  Report Type: Spontaneous
  Country: EU (occurrence: EU)
  Receive Date: 20250829
  Receipt Date: 20251010
  Transmission Date: 20260118
  Serious: Yes (Other)
  Sender: JOHNSON AND JOHNSON
  Company Number: None

PATIENT
  Age: 66 Year
  Sex: Female
  Weight: 52 kg

DRUGS (7)
  1. RYBREVANT [Suspect]
     Active Substance: AMIVANTAMAB-VMJW
     Indication: Non-small cell lung cancer
     Dosage: C1J1
     Route: 042
     Dates: start: 20250710, end: 20250710
  2. RYBREVANT [Suspect]
     Active Substance: AMIVANTAMAB-VMJW
     Dosage: C1J2
     Route: 042
     Dates: start: 20250711, end: 20250711
  3. RYBREVANT [Suspect]
     Active Substance: AMIVANTAMAB-VMJW
     Dosage: TOUTES LES 3 SEMAINES
     Route: 042
     Dates: start: 20250801
  4. CARBOPLATIN [Suspect]
     Active Substance: CARBOPLATIN
     Indication: Non-small cell lung cancer
     Dosage: C1J1
     Route: 042
     Dates: start: 20250710, end: 20250710
  5. CARBOPLATIN [Suspect]
     Active Substance: CARBOPLATIN
     Dosage: TOUTES LES 3 SEMAINES
     Route: 042
     Dates: start: 20250801
  6. PEMETREXED [Suspect]
     Active Substance: PEMETREXED
     Indication: Non-small cell lung cancer
     Dosage: C1J1
     Route: 042
     Dates: start: 20250710, end: 20250710
  7. PEMETREXED [Suspect]
     Active Substance: PEMETREXED
     Dosage: EVERY 3 WEEKS
     Route: 042
     Dates: start: 20250801

REACTIONS (6)
  - Pancytopenia [Recovered/Resolved]
  - Seborrhoeic dermatitis [Recovered/Resolved with Sequelae]
  - Leser-Trelat sign [Recovered/Resolved]
  - Aphthous ulcer [Recovering/Resolving]
  - Asthenia [Recovered/Resolved]
  - Decreased appetite [Recovered/Resolved]

NARRATIVE: CASE EVENT DATE: 20250712
